FAERS Safety Report 9505404 (Version 1)
Quarter: 2013Q1

REPORT INFORMATION
  Report Type: Spontaneous
  Country: US (occurrence: None)
  Receive Date: 20130220
  Receipt Date: 20130220
  Transmission Date: 20140127
  Serious: No
  Sender: FDA-Public Use
  Company Number: 1000040245

PATIENT
  Sex: Female

DRUGS (1)
  1. VIIBYRD (VILAZODONE HYDROCHLORIDE) [Suspect]
     Dosage: 10 MG (10 MG, 1 IN 1 D)
     Dates: start: 20121128

REACTIONS (2)
  - Nausea [None]
  - Abdominal pain [None]
